FAERS Safety Report 6704456-0 (Version None)
Quarter: 2010Q2

REPORT INFORMATION
  Report Type: 
  Country: None (occurrence: None)
  Receive Date: 20100430
  Receipt Date: 20100416
  Transmission Date: 20101027
  Serious: Yes (Death, Hospitalization, Other)
  Sender: FDA-Public Use
  Company Number: IE-MEDIMMUNE-MEDI-0009918

PATIENT
  Sex: Male

DRUGS (3)
  1. SYNAGIS [Suspect]
     Route: 030
     Dates: start: 20091020, end: 20091020
  2. SALBUTAMOL [Concomitant]
  3. TRIMETHOPRIM [Concomitant]

REACTIONS (2)
  - KIDNEY INFECTION [None]
  - RENAL DISORDER [None]
